FAERS Safety Report 13193393 (Version 2)
Quarter: 2017Q1

REPORT INFORMATION
  Report Type: Report from Study
  Country: US (occurrence: US)
  Receive Date: 20170207
  Receipt Date: 20170210
  Transmission Date: 20170428
  Serious: Yes (Other)
  Sender: FDA-Public Use
  Company Number: US-BRISTOL-MYERS SQUIBB COMPANY-BMS-2017-008295

PATIENT
  Sex: Male
  Weight: 74.8 kg

DRUGS (1)
  1. ABATACEPT [Suspect]
     Active Substance: ABATACEPT
     Indication: RHEUMATOID ARTHRITIS
     Dosage: UNK, Q3WK
     Route: 042

REACTIONS (5)
  - Musculoskeletal chest pain [Unknown]
  - Fall [Unknown]
  - Off label use [Unknown]
  - Prostate cancer [Unknown]
  - Haematochezia [Unknown]
